FAERS Safety Report 5861324-4 (Version None)
Quarter: 2008Q3

REPORT INFORMATION
  Report Type: 
  Country: None (occurrence: None)
  Receive Date: 20080826
  Receipt Date: 20080818
  Transmission Date: 20090109
  Serious: Yes (Disabling)
  Sender: FDA-Public Use
  Company Number: 2008002000

PATIENT
  Age: 65 Year
  Sex: Male

DRUGS (21)
  1. ERLOTINIB (ERLOTINIB) (TABLET) (ERLOTINIB) [Suspect]
     Indication: NON-SMALL CELL LUNG CANCER
     Dosage: ORAL
     Route: 048
     Dates: start: 20080105, end: 20080731
  2. BEVACIZUMAB [Suspect]
     Dosage: INTRAVENOUS
     Route: 042
     Dates: start: 20070928, end: 20080711
  3. LIPITOR [Concomitant]
  4. LOTREL [Concomitant]
  5. MOTRIN [Concomitant]
  6. VICODIN [Concomitant]
  7. GLUCOSAMINE (GLUCOSAMINE) [Concomitant]
  8. CHONDROITIN SULFATE (CHONDROITIN SULFATE) [Concomitant]
  9. DAYZIDE (DAYZIDE) [Concomitant]
  10. PROTONIX [Concomitant]
  11. SENNA (SENNA) [Concomitant]
  12. FLOMAX (MORNIFLUMATE) [Concomitant]
  13. OXYCONTIN [Concomitant]
  14. DEXAMETHASONE TAB [Concomitant]
  15. XALATAN [Concomitant]
  16. LOVENOX [Concomitant]
  17. GLAUCOMA MEDICATION NOS (ANTIGLAUCOMA PREPARATIONS AND MIOTICS) [Concomitant]
  18. LUMIGAN [Concomitant]
  19. CELEXA [Concomitant]
  20. ATIVAN [Concomitant]
  21. COUMADIN [Concomitant]

REACTIONS (5)
  - BENIGN PROSTATIC HYPERPLASIA [None]
  - CATARACT [None]
  - GLAUCOMA [None]
  - OPTIC NEUROPATHY [None]
  - VISION BLURRED [None]
